FAERS Safety Report 20052761 (Version 1)
Quarter: 2021Q4

REPORT INFORMATION
  Report Type: Spontaneous
  Country: US (occurrence: None)
  Receive Date: 20211109
  Receipt Date: 20211109
  Transmission Date: 20220303
  Serious: Yes (Other)
  Sender: FDA-Public Use
  Company Number: None

PATIENT
  Age: 40 Day
  Sex: Female
  Weight: 67.5 kg

DRUGS (1)
  1. NALTREXONE [Suspect]
     Active Substance: NALTREXONE
     Dosage: OTHER QUANTITY : 8 200MG EACH;?
     Route: 058

REACTIONS (1)
  - Off label use [None]

NARRATIVE: CASE EVENT DATE: 20211109
